FAERS Safety Report 11184755 (Version 1)
Quarter: 2015Q2

REPORT INFORMATION
  Report Type: Spontaneous
  Country: GB (occurrence: GB)
  Receive Date: 20150612
  Receipt Date: 20150612
  Transmission Date: 20150821
  Serious: Yes (Other)
  Sender: FDA-Public Use
  Company Number: GB-TEVA-568721ACC

PATIENT
  Age: 51 Year
  Sex: Female

DRUGS (4)
  1. VITAMINS NOS [Concomitant]
     Active Substance: VITAMINS
  2. MIRTAZAPINE. [Suspect]
     Active Substance: MIRTAZAPINE
     Indication: FIBROMYALGIA
     Dosage: 15 MG
     Dates: start: 20150520, end: 20150520
  3. INHALERS [Concomitant]
     Active Substance: UNSPECIFIED INGREDIENT
  4. AMITRIPTYLINE [Concomitant]
     Active Substance: AMITRIPTYLINE

REACTIONS (10)
  - Mania [Recovered/Resolved]
  - Headache [Not Recovered/Not Resolved]
  - Hangover [Not Recovered/Not Resolved]
  - Fatigue [Recovered/Resolved]
  - Aggression [Recovered/Resolved]
  - Psychomotor hyperactivity [Recovered/Resolved]
  - Anger [Recovered/Resolved]
  - Feeling abnormal [Recovered/Resolved]
  - Feeling drunk [Recovered/Resolved]
  - Inappropriate affect [Recovered/Resolved]

NARRATIVE: CASE EVENT DATE: 20150521
